FAERS Safety Report 23553113 (Version 1)
Quarter: 2024Q1

REPORT INFORMATION
  Report Type: Spontaneous
  Country: US (occurrence: US)
  Receive Date: 20240222
  Receipt Date: 20240222
  Transmission Date: 20240410
  Serious: No
  Sender: FDA-Public Use
  Company Number: US-BRISTOL-MYERS SQUIBB COMPANY-2024-026377

PATIENT
  Age: 10 Year
  Sex: Male

DRUGS (1)
  1. ORENCIA [Suspect]
     Active Substance: ABATACEPT
     Indication: Juvenile idiopathic arthritis
     Dosage: FREQ: AT WEEK 0, 2, 6, THEN EVERY 4 WEEKS THEREAFTER
     Route: 042

REACTIONS (2)
  - Joint swelling [Unknown]
  - Off label use [Unknown]
